FAERS Safety Report 9304364 (Version 2)
Quarter: 2013Q3

REPORT INFORMATION
  Report Type: Report from Study
  Country: US (occurrence: US)
  Receive Date: 20130522
  Receipt Date: 20130716
  Transmission Date: 20140515
  Serious: Yes (Other)
  Sender: FDA-Public Use
  Company Number: US-US-EMD SERONO, INC.-7211816

PATIENT
  Age: 4 Year
  Sex: Female
  Weight: 19 kg

DRUGS (23)
  1. SAIZEN [(SOMATROPIN (RDNA ORIGIN) FOR INJECTION)] [Suspect]
     Indication: HYPOPITUITARISM
     Route: 058
     Dates: start: 20100611
  2. ALBUTEROL                          /00139501/ [Concomitant]
     Indication: PRODUCT USED FOR UNKNOWN INDICATION
  3. ALPHA LIPOIC ACID [Concomitant]
     Indication: PRODUCT USED FOR UNKNOWN INDICATION
  4. ATROVENT [Concomitant]
     Indication: PRODUCT USED FOR UNKNOWN INDICATION
  5. VITAMIN B6 [Concomitant]
     Indication: PRODUCT USED FOR UNKNOWN INDICATION
  6. BENEFIBER                          /01648102/ [Concomitant]
     Indication: PRODUCT USED FOR UNKNOWN INDICATION
     Dosage: 3 TSP
  7. CALCI-MIX [Concomitant]
     Indication: PRODUCT USED FOR UNKNOWN INDICATION
  8. CARNITOR [Concomitant]
     Indication: PRODUCT USED FOR UNKNOWN INDICATION
  9. CLONAZEPAM [Concomitant]
     Indication: PRODUCT USED FOR UNKNOWN INDICATION
  10. COENZYME Q10                       /00517201/ [Concomitant]
     Indication: PRODUCT USED FOR UNKNOWN INDICATION
  11. DIASTAT                            /00017001/ [Concomitant]
     Indication: PRODUCT USED FOR UNKNOWN INDICATION
  12. FLORASTOR [Concomitant]
     Indication: PRODUCT USED FOR UNKNOWN INDICATION
     Dosage: HALF CAPSULE
  13. LAMICTAL [Concomitant]
     Indication: CONVULSION
  14. MAGNESIUM OXIDE [Concomitant]
     Indication: PRODUCT USED FOR UNKNOWN INDICATION
  15. POLYCITRA                          /00158701/ [Concomitant]
     Indication: PRODUCT USED FOR UNKNOWN INDICATION
  16. ATENOLOL [Concomitant]
     Indication: PRODUCT USED FOR UNKNOWN INDICATION
  17. SODIUM CHLORIDE [Concomitant]
     Indication: PRODUCT USED FOR UNKNOWN INDICATION
  18. TOPIRAMATE [Concomitant]
     Indication: PRODUCT USED FOR UNKNOWN INDICATION
  19. PIRACETAM [Concomitant]
     Indication: ORTHOSTATIC HYPOTENSION
  20. PIRACETAM [Concomitant]
     Indication: DEPRESSED LEVEL OF CONSCIOUSNESS
  21. LORAZEPAM [Concomitant]
     Indication: ANXIETY
  22. LEVOXYL [Concomitant]
     Indication: PRODUCT USED FOR UNKNOWN INDICATION
     Dates: end: 201208
  23. LEVOXYL [Concomitant]
     Dates: start: 201208

REACTIONS (8)
  - Convulsion [Not Recovered/Not Resolved]
  - Aspiration [Unknown]
  - Gastroenteritis viral [Unknown]
  - Sinus tachycardia [Unknown]
  - Sleep apnoea syndrome [Unknown]
  - Scoliosis [Unknown]
  - Anticonvulsant drug level above therapeutic [Unknown]
  - Blood glucose decreased [Unknown]
